FAERS Safety Report 8230834-7 (Version None)
Quarter: 2012Q1

REPORT INFORMATION
  Report Type: 
  Country: None (occurrence: None)
  Receive Date: 20120323
  Receipt Date: 20120314
  Transmission Date: 20120608
  Serious: Yes (Other)
  Sender: FDA-Public Use
  Company Number: MX-SANOFI-AVENTIS-2012SA017689

PATIENT
  Age: 64 Year
  Sex: Female
  Weight: 52 kg

DRUGS (4)
  1. LANTUS [Suspect]
     Route: 058
     Dates: start: 20090101
  2. ENALAPRIL [Concomitant]
     Route: 048
     Dates: start: 19920101, end: 20111201
  3. LANTUS [Suspect]
     Indication: TYPE 2 DIABETES MELLITUS
     Route: 058
     Dates: start: 20060101, end: 20090101
  4. LOSARTAN POTASSIUM [Concomitant]
     Route: 048
     Dates: start: 20111201

REACTIONS (4)
  - HYPERGLYCAEMIA [None]
  - CATARACT [None]
  - AUTONOMIC NEUROPATHY [None]
  - RENAL FAILURE CHRONIC [None]
